FAERS Safety Report 7647059-6 (Version None)
Quarter: 2011Q3

REPORT INFORMATION
  Report Type: 
  Country: None (occurrence: None)
  Receive Date: 20110801
  Receipt Date: 20110729
  Transmission Date: 20111222
  Serious: Yes (Hospitalization)
  Sender: FDA-Public Use
  Company Number: BE-PFIZER INC-2006063472

PATIENT
  Age: 62 Year
  Sex: Female

DRUGS (8)
  1. CALCIUM CARBONATE [Concomitant]
     Route: 048
     Dates: start: 20050101
  2. SUNITINIB MALATE [Suspect]
     Indication: RENAL CELL CARCINOMA
     Dosage: 50 MG, 1X/DAY INTERVAL: 4WKS ON, 2 OFF
     Route: 048
     Dates: start: 20060504, end: 20060512
  3. LOSFERRON [Concomitant]
     Route: 048
     Dates: start: 20051001
  4. CITALOPRAM HYDROBROMIDE [Concomitant]
     Route: 048
     Dates: start: 20060101
  5. ZOLPIDEM TARTRATE [Concomitant]
     Route: 048
     Dates: start: 20050101
  6. ACETAMINOPHEN [Concomitant]
     Route: 048
     Dates: start: 20050101
  7. BETASERC [Concomitant]
     Route: 048
     Dates: start: 20060504
  8. STUGERON [Concomitant]
     Route: 048
     Dates: start: 19890101

REACTIONS (2)
  - HALLUCINATION, VISUAL [None]
  - PYREXIA [None]
